FAERS Safety Report 4760151-9 (Version None)
Quarter: 2005Q3

REPORT INFORMATION
  Report Type: 
  Country: None (occurrence: None)
  Receive Date: 20050830
  Receipt Date: 20050830
  Transmission Date: 20060218
  Serious: No
  Sender: FDA-Public Use
  Company Number: None

PATIENT
  Age: 30 Year
  Sex: Female
  Weight: 68.0396 kg

DRUGS (2)
  1. FENTANYL [Suspect]
     Indication: ENDOMETRIOSIS
     Dosage: 1 PATCH   48 HRS   TRANSDERMA
     Route: 062
     Dates: start: 20050328, end: 20050829
  2. FENTANYL [Suspect]
     Indication: PAIN
     Dosage: 1 PATCH   48 HRS   TRANSDERMA
     Route: 062
     Dates: start: 20050328, end: 20050829

REACTIONS (7)
  - CHILLS [None]
  - DRUG EFFECT DECREASED [None]
  - DRUG WITHDRAWAL SYNDROME [None]
  - INFLUENZA LIKE ILLNESS [None]
  - NAUSEA [None]
  - PAIN [None]
  - PHARMACEUTICAL PRODUCT COMPLAINT [None]
